FAERS Safety Report 25968367 (Version 3)
Quarter: 2025Q4

REPORT INFORMATION
  Report Type: Report from Study
  Country: US (occurrence: US)
  Receive Date: 20251028
  Receipt Date: 20251119
  Transmission Date: 20260118
  Serious: Yes (Hospitalization)
  Sender: JOHNSON AND JOHNSON
  Company Number: US-JNJFOC-20251031235

PATIENT
  Age: 79 Year
  Sex: Male

DRUGS (36)
  1. DARATUMUMAB [Suspect]
     Active Substance: DARATUMUMAB
     Indication: Plasma cell myeloma
     Route: 042
  2. ETENTAMIG [Suspect]
     Active Substance: ETENTAMIG
     Indication: Plasma cell myeloma
     Dosage: STEP-UP DOSE, C1D1
     Route: 042
     Dates: start: 20250908, end: 20250908
  3. ETENTAMIG [Suspect]
     Active Substance: ETENTAMIG
     Dosage: C1D4, THEN D1 OF SUBSEQUENT CYCLES
     Route: 042
     Dates: start: 20250911
  4. LENALIDOMIDE [Suspect]
     Active Substance: LENALIDOMIDE
     Indication: Plasma cell myeloma
     Route: 048
     Dates: start: 20251006, end: 20251010
  5. LENALIDOMIDE [Suspect]
     Active Substance: LENALIDOMIDE
     Route: 048
     Dates: start: 20251014
  6. DEXAMETHASONE [Suspect]
     Active Substance: DEXAMETHASONE
     Indication: Plasma cell myeloma
     Route: 048
     Dates: start: 20250915
  7. DEXAMETHASONE [Suspect]
     Active Substance: DEXAMETHASONE
     Indication: Cytokine release syndrome
     Route: 048
     Dates: start: 20250908
  8. DEXAMETHASONE [Suspect]
     Active Substance: DEXAMETHASONE
     Indication: Immune effector cell-associated neurotoxicity syndrome
     Route: 048
     Dates: start: 20250909, end: 20250910
  9. DEXAMETHASONE [Suspect]
     Active Substance: DEXAMETHASONE
     Indication: Premedication
  10. FLONASE [Concomitant]
     Active Substance: FLUTICASONE PROPIONATE
     Indication: Product used for unknown indication
  11. CLOBETASOL [Concomitant]
     Active Substance: CLOBETASOL
     Indication: Product used for unknown indication
     Dates: start: 202505
  12. CLOBETASOL [Concomitant]
     Active Substance: CLOBETASOL
     Dates: start: 202505
  13. CLOBETASOL [Concomitant]
     Active Substance: CLOBETASOL
     Dates: start: 202505
  14. CLOBETASOL [Concomitant]
     Active Substance: CLOBETASOL
     Dates: start: 202505
  15. SODIUM CHLORIDE [Concomitant]
     Active Substance: SODIUM CHLORIDE
     Indication: Fluid replacement
     Dosage: 1000 ML, TOTAL; 10 ML, 2/DAYS; 14 G, AS NECESSARY
     Dates: start: 20250909, end: 20250912
  16. SODIUM CHLORIDE [Concomitant]
     Active Substance: SODIUM CHLORIDE
     Indication: Prophylaxis
     Dosage: 1000 ML, TOTAL; 10 ML, 2/DAYS; 14 G, AS NECESSARY
     Dates: start: 20250911, end: 20250911
  17. SODIUM CHLORIDE [Concomitant]
     Active Substance: SODIUM CHLORIDE
     Indication: Seasonal allergy
  18. SINGULAIR [Concomitant]
     Active Substance: MONTELUKAST SODIUM
     Indication: Pyrexia
     Dates: start: 20250915
  19. SINGULAIR [Concomitant]
     Active Substance: MONTELUKAST SODIUM
     Indication: Premedication
  20. SODIUM PHOSPHATE [Concomitant]
     Active Substance: SODIUM PHOSPHATE
     Indication: Electrolyte substitution therapy
     Dates: start: 20250910, end: 20250912
  21. BACTRIM [Concomitant]
     Active Substance: SULFAMETHOXAZOLE\TRIMETHOPRIM
     Indication: Antibiotic prophylaxis
     Dosage: 800/160 MG, EVERY 2 DAYS
  22. ACYCLOVIR [Concomitant]
     Active Substance: ACYCLOVIR
     Indication: Antiviral prophylaxis
     Dates: start: 20250910
  23. METAMUCIL [INULIN] [Concomitant]
     Indication: Constipation prophylaxis
     Dates: start: 2023
  24. VITAMINS [Concomitant]
     Active Substance: VITAMINS
     Indication: Routine health maintenance
     Dates: start: 2020
  25. SIMVASTATIN [Concomitant]
     Active Substance: SIMVASTATIN
     Indication: Hyperlipidaemia
     Dates: start: 2005
  26. WELLBUTRIN [Concomitant]
     Active Substance: BUPROPION HYDROCHLORIDE
     Indication: Depression
     Dates: start: 2022
  27. WELLBUTRIN [Concomitant]
     Active Substance: BUPROPION HYDROCHLORIDE
     Dates: start: 20250914
  28. GABAPENTIN [Concomitant]
     Active Substance: GABAPENTIN
     Indication: Paraesthesia
     Dates: start: 20250930
  29. PEPCID [Concomitant]
     Active Substance: FAMOTIDINE
     Indication: Hiccups
     Dosage: AS NESSASARY
     Dates: start: 20250922, end: 20250929
  30. MUPIROCIN [Concomitant]
     Active Substance: MUPIROCIN
     Indication: Antibiotic prophylaxis
     Dosage: 1%, 2/DAYS
     Dates: start: 20250909, end: 20250912
  31. DIPHENHYDRAMINE [Concomitant]
     Active Substance: DIPHENHYDRAMINE
     Indication: Allergy prophylaxis
     Dates: start: 20250910, end: 20250910
  32. DIPHENHYDRAMINE [Concomitant]
     Active Substance: DIPHENHYDRAMINE
     Indication: Cytokine release syndrome
     Dates: start: 20250908
  33. DIPHENHYDRAMINE [Concomitant]
     Active Substance: DIPHENHYDRAMINE
     Indication: Immune effector cell-associated neurotoxicity syndrome
  34. ASPIRIN [Concomitant]
     Active Substance: ASPIRIN
     Indication: Thrombosis prophylaxis
     Dates: start: 20251006
  35. ENOXAPARIN [Concomitant]
     Active Substance: ENOXAPARIN
     Indication: Thrombosis prophylaxis
     Dates: start: 20250909, end: 20250911
  36. GABAPENTIN [Concomitant]
     Active Substance: GABAPENTIN
     Indication: Paraesthesia
     Dates: start: 20250930, end: 20251027

REACTIONS (2)
  - Fall [Recovered/Resolved]
  - Pyrexia [Recovered/Resolved]

NARRATIVE: CASE EVENT DATE: 20251010
